FAERS Safety Report 13803455 (Version 1)
Quarter: 2017Q3

REPORT INFORMATION
  Report Type: Spontaneous
  Country: US (occurrence: US)
  Receive Date: 20170728
  Receipt Date: 20170728
  Transmission Date: 20171127
  Serious: No
  Sender: FDA-Public Use
  Company Number: None

PATIENT
  Sex: Female
  Weight: 99 kg

DRUGS (7)
  1. LOSARTAN. [Concomitant]
     Active Substance: LOSARTAN
  2. VITAMIN D [Concomitant]
     Active Substance: CHOLECALCIFEROL
  3. TOPOL XL [Concomitant]
  4. NORVASC [Concomitant]
     Active Substance: AMLODIPINE BESYLATE
  5. SPIROLATONE [Concomitant]
  6. CALCITROL [Concomitant]
     Active Substance: CALCITRIOL
  7. BD POSI FLUSH SALINE 10 ML SYRINGE PREFILLED [Suspect]
     Active Substance: SODIUM CHLORIDE
     Indication: DIALYSIS
     Route: 042

REACTIONS (2)
  - Headache [None]
  - Dysgeusia [None]

NARRATIVE: CASE EVENT DATE: 20170727
